FAERS Safety Report 25475744 (Version 1)
Quarter: 2025Q2

REPORT INFORMATION
  Report Type: Spontaneous
  Country: JP (occurrence: JP)
  Receive Date: 20250624
  Receipt Date: 20250624
  Transmission Date: 20250717
  Serious: Yes (Other)
  Sender: GENMAB
  Company Number: JP-GENMAB-2025-01740

PATIENT
  Age: 49 Year
  Sex: Female

DRUGS (1)
  1. EPKINLY [Suspect]
     Active Substance: EPCORITAMAB-BYSP
     Indication: Follicular lymphoma refractory
     Route: 065
     Dates: start: 2025

REACTIONS (9)
  - Cytomegalovirus viraemia [Unknown]
  - Spontaneous bacterial peritonitis [Unknown]
  - Bacteraemia [Unknown]
  - Bacteraemia [Unknown]
  - Hypogammaglobulinaemia [Unknown]
  - Pneumocystis jirovecii pneumonia [Recovering/Resolving]
  - Blood beta-D-glucan increased [Unknown]
  - Lung opacity [Unknown]
  - Pyrexia [Unknown]

NARRATIVE: CASE EVENT DATE: 20250101
